FAERS Safety Report 6079917-0 (Version None)
Quarter: 2009Q1

REPORT INFORMATION
  Report Type: 
  Country: None (occurrence: None)
  Receive Date: 20090217
  Receipt Date: 20090212
  Transmission Date: 20090719
  Serious: Yes (Life-Threatening, Hospitalization)
  Sender: FDA-Public Use
  Company Number: DK-ASTRAZENECA-2009SE00750

PATIENT
  Sex: Male
  Weight: 95 kg

DRUGS (3)
  1. ZOLADEX [Suspect]
     Indication: PROSTATE CANCER
     Route: 058
     Dates: start: 20060101
  2. SUTENT [Suspect]
     Indication: METASTATIC RENAL CELL CARCINOMA
     Dosage: 50 MILLIGRAM(S)
     Route: 048
     Dates: start: 20071001, end: 20090119
  3. AMLODIPIN ^ACTAVIS^ [Concomitant]
     Indication: HYPERTENSION
     Route: 048

REACTIONS (1)
  - ANGIOEDEMA [None]
